FAERS Safety Report 24116711 (Version 1)
Quarter: 2024Q3

REPORT INFORMATION
  Report Type: Spontaneous
  Country: US (occurrence: US)
  Receive Date: 20240722
  Receipt Date: 20240722
  Transmission Date: 20241017
  Serious: No
  Sender: ASTELLAS
  Company Number: US-ASTELLAS-2024US015872

PATIENT
  Sex: Female

DRUGS (2)
  1. MYRBETRIQ [Suspect]
     Active Substance: MIRABEGRON
     Indication: Nocturia
     Dosage: UNK UNK, ONCE DAILY
     Route: 065
  2. MYRBETRIQ [Suspect]
     Active Substance: MIRABEGRON
     Dosage: UNK UNK, ONCE DAILY
     Route: 065
     Dates: start: 202405

REACTIONS (1)
  - Off label use [Unknown]
